FAERS Safety Report 16913377 (Version 1)
Quarter: 2019Q4

REPORT INFORMATION
  Report Type: Spontaneous
  Country: US (occurrence: US)
  Receive Date: 20191014
  Receipt Date: 20191014
  Transmission Date: 20200122
  Serious: No
  Sender: FDA-Public Use
  Company Number: US-GLENMARK PHARMACEUTICALS-2019GMK042517

PATIENT

DRUGS (3)
  1. TYLENOL [Concomitant]
     Active Substance: ACETAMINOPHEN
     Indication: HEADACHE
     Dosage: 2 -3 TABLETS, PRN
     Route: 065
  2. HEATHER [Suspect]
     Active Substance: NORETHINDRONE
     Indication: ORAL CONTRACEPTION
     Dosage: 0.35 MG, OD (PREVIOUS PACK)
     Route: 048
     Dates: end: 20190720
  3. HEATHER [Suspect]
     Active Substance: NORETHINDRONE
     Dosage: 0.35 MG, OD (NEW PACK)
     Route: 048
     Dates: start: 20190723

REACTIONS (7)
  - Menorrhagia [Unknown]
  - Skin odour abnormal [Unknown]
  - Hyperhidrosis [Unknown]
  - Dysmenorrhoea [Unknown]
  - Amenorrhoea [Unknown]
  - Weight increased [Unknown]
  - Skin texture abnormal [Unknown]

NARRATIVE: CASE EVENT DATE: 201907
